FAERS Safety Report 9275967 (Version 1)
Quarter: 2012Q4

REPORT INFORMATION
  Report Type: Spontaneous
  Country: US (occurrence: None)
  Receive Date: 20121109
  Receipt Date: 20121109
  Transmission Date: 20130627
  Serious: Yes (Other)
  Sender: FDA-Public Use
  Company Number: 2011S1000675

PATIENT
  Age: 38 Year
  Sex: Male

DRUGS (5)
  1. CUBICIN [Suspect]
     Indication: FEVER
  2. CUBICIN [Suspect]
     Indication: CELLULITIS
  3. INFLIXIMAB [Concomitant]
  4. VANCOMYCIN [Concomitant]
  5. RIFAMPIN [Concomitant]

REACTIONS (4)
  - Productive cough [None]
  - Lung infiltration [None]
  - Muscular weakness [None]
  - Off label use [None]
